FAERS Safety Report 16037890 (Version 1)
Quarter: 2019Q1

REPORT INFORMATION
  Report Type: Spontaneous
  Country: FR (occurrence: FR)
  Receive Date: 20190305
  Receipt Date: 20190305
  Transmission Date: 20190418
  Serious: Yes (Other)
  Sender: FDA-Public Use
  Company Number: FR-MYLANLABS-2019M1019233

PATIENT
  Age: 58 Year
  Sex: Female

DRUGS (1)
  1. ZOLMITRIPTAN. [Suspect]
     Active Substance: ZOLMITRIPTAN
     Indication: PRODUCT USED FOR UNKNOWN INDICATION
     Dosage: VERY OFTEN
     Route: 048
     Dates: start: 201802

REACTIONS (2)
  - Drug dependence [Not Recovered/Not Resolved]
  - Medication overuse headache [Not Recovered/Not Resolved]

NARRATIVE: CASE EVENT DATE: 201802
